FAERS Safety Report 23874406 (Version 2)
Quarter: 2024Q2

REPORT INFORMATION
  Report Type: Spontaneous
  Country: US (occurrence: US)
  Receive Date: 20240520
  Receipt Date: 20240619
  Transmission Date: 20240716
  Serious: No
  Sender: FDA-Public Use
  Company Number: US-PFIZER INC-PV202400064226

PATIENT
  Age: 64 Year
  Sex: Female

DRUGS (10)
  1. GENOTROPIN [Suspect]
     Active Substance: SOMATROPIN
     Indication: Hypopituitarism
     Dosage: ALTERNATE 1.2 MG/DAY, 1 DAYS/WEEK
  2. GENOTROPIN [Suspect]
     Active Substance: SOMATROPIN
     Indication: Growth hormone deficiency
  3. FUROSEMIDE [Concomitant]
     Active Substance: FUROSEMIDE
     Dosage: STOP
     Route: 048
  4. ARMOUR THYROID [Concomitant]
     Active Substance: THYROID, PORCINE
     Dosage: T-TH-SAT-SUN
     Route: 048
  5. ARMOUR THYROID [Concomitant]
     Active Substance: THYROID, PORCINE
     Dosage: TAKE 1 TABLET M-W-F
     Route: 048
  6. VIVELLE-DOT [Concomitant]
     Active Substance: ESTRADIOL
     Dosage: 0.05 MG/24HR, APPLY AND CHANGE 1 PATCH EXTERNALLY TWICE WEEKLY
  7. FLONASE ALLERGY RELIEF [Concomitant]
     Active Substance: FLUTICASONE PROPIONATE
     Indication: Hypersensitivity
     Dosage: 50 MCG/ACT, CHANGE TO SPRAY 1 SPRAY IN EACH NOSTRIL TWO TIMES DAILY AS NEEDED
  8. BUMETANIDE [Concomitant]
     Active Substance: BUMETANIDE
     Dosage: USE AS DIRECTED
  9. BUMETANIDE [Concomitant]
     Active Substance: BUMETANIDE
     Dosage: 1 DF, 2X/DAY
     Route: 048
  10. AMLODIPINE BESYLATE [Concomitant]
     Active Substance: AMLODIPINE BESYLATE
     Dosage: 1 DF, DAILY
     Route: 048

REACTIONS (7)
  - Blood sodium increased [Unknown]
  - Blood testosterone decreased [Unknown]
  - Blood testosterone free decreased [Unknown]
  - Glycosylated haemoglobin increased [Unknown]
  - Total cholesterol/HDL ratio increased [Unknown]
  - Low density lipoprotein increased [Unknown]
  - Off label use [Unknown]
